FAERS Safety Report 14309566 (Version 2)
Quarter: 2017Q4

REPORT INFORMATION
  Report Type: Spontaneous
  Country: TR (occurrence: TR)
  Receive Date: 20171220
  Receipt Date: 20171227
  Transmission Date: 20180321
  Serious: Yes (Death, Other)
  Sender: FDA-Public Use
  Company Number: TR-ABBVIE-17P-161-2198812-00

PATIENT
  Age: 70 Year
  Sex: Male

DRUGS (5)
  1. VENCLYXTO [Suspect]
     Active Substance: VENETOCLAX
     Route: 048
     Dates: start: 20171205, end: 20171205
  2. VENCLYXTO [Suspect]
     Active Substance: VENETOCLAX
     Route: 048
     Dates: start: 20171206, end: 20171206
  3. VENCLYXTO [Suspect]
     Active Substance: VENETOCLAX
     Indication: ACUTE MYELOID LEUKAEMIA
     Route: 048
     Dates: start: 20171204, end: 20171204
  4. VENCLYXTO [Suspect]
     Active Substance: VENETOCLAX
     Route: 048
     Dates: start: 20171207, end: 20171207
  5. VENCLYXTO [Suspect]
     Active Substance: VENETOCLAX
     Route: 048
     Dates: start: 20171208

REACTIONS (9)
  - Enterobacter infection [Fatal]
  - Pneumonia fungal [Fatal]
  - Blood urea increased [Unknown]
  - Blood creatinine increased [Unknown]
  - General physical health deterioration [Fatal]
  - Respiratory arrest [Fatal]
  - Pleural effusion [Unknown]
  - Bacterial infection [Fatal]
  - Pathogen resistance [Fatal]
